FAERS Safety Report 25794969 (Version 1)
Quarter: 2025Q3

REPORT INFORMATION
  Report Type: Report from Study
  Country: IN (occurrence: IN)
  Receive Date: 20250912
  Receipt Date: 20250912
  Transmission Date: 20251020
  Serious: Yes (Other)
  Sender: ACCORD
  Company Number: IN-Accord-504343

PATIENT

DRUGS (2)
  1. TOPOTECAN [Suspect]
     Active Substance: TOPOTECAN HYDROCHLORIDE
     Indication: Retinoblastoma
     Route: 013
  2. MELPHALAN [Suspect]
     Active Substance: MELPHALAN
     Indication: Retinoblastoma
     Route: 013

REACTIONS (1)
  - Retinal haemorrhage [Unknown]
